FAERS Safety Report 7291006-6 (Version None)
Quarter: 2011Q1

REPORT INFORMATION
  Report Type: 
  Country: None (occurrence: None)
  Receive Date: 20110214
  Receipt Date: 20110202
  Transmission Date: 20110831
  Serious: Yes (Other)
  Sender: FDA-Public Use
  Company Number: JP-NOVOPROD-318321

PATIENT
  Age: 58 Year
  Sex: Male
  Weight: 61 kg

DRUGS (2)
  1. NOVOLIN R [Suspect]
     Indication: TYPE 2 DIABETES MELLITUS
     Dosage: 60 IU, QD
     Route: 058
     Dates: end: 20100625
  2. NOVOLIN N [Suspect]
     Indication: TYPE 2 DIABETES MELLITUS
     Dosage: 20 IU, QD
     Route: 058
     Dates: end: 20100625

REACTIONS (3)
  - HYPOGLYCAEMIA [None]
  - ANTI-INSULIN ANTIBODY [None]
  - HYPERGLYCAEMIA [None]
